FAERS Safety Report 14088588 (Version 1)
Quarter: 2017Q4

REPORT INFORMATION
  Report Type: Other
  Country: GB (occurrence: FR)
  Receive Date: 20171013
  Receipt Date: 20171013
  Transmission Date: 20180321
  Serious: Yes (Death, Life-Threatening, Other)
  Sender: FDA-Public Use
  Company Number: FR-INTERNATIONAL MEDICATION SYSTEMS, LIMITED-2030066

PATIENT
  Age: 34 Year
  Sex: Male

DRUGS (3)
  1. EPINEPHRINE 2 MG/H DRIP [Suspect]
     Active Substance: EPINEPHRINE
     Route: 041
  2. SODIUM BICARBONATE. [Concomitant]
     Active Substance: SODIUM BICARBONATE
  3. GLUCAGON. [Concomitant]
     Active Substance: GLUCAGON

REACTIONS (2)
  - Drug ineffective [Fatal]
  - Death [Fatal]
